FAERS Safety Report 8309083-X (Version None)
Quarter: 2012Q2

REPORT INFORMATION
  Report Type: 
  Country: None (occurrence: None)
  Receive Date: 20120424
  Receipt Date: 20120419
  Transmission Date: 20120825
  Serious: Yes (Other)
  Sender: FDA-Public Use
  Company Number: BR-PFIZER INC-2012098313

PATIENT
  Age: 31 Year
  Sex: Female
  Weight: 79 kg

DRUGS (9)
  1. DEPURAN [Concomitant]
     Dosage: UNK
  2. CEPHALEXIN [Concomitant]
     Dosage: UNK
  3. THIAMINE HYDROCHLORIDE [Concomitant]
     Dosage: UNK
  4. ASPIRIN [Concomitant]
     Dosage: UNK
  5. DIPYRONE TAB [Concomitant]
     Dosage: UNK
  6. LYRICA [Suspect]
     Dosage: UNK
     Route: 048
  7. NIMESULIDE [Concomitant]
     Dosage: UNK
  8. OMEPRAZOLE [Concomitant]
     Dosage: UNK
  9. TRAMADOL HYDROCHLORIDE [Concomitant]
     Dosage: UNK

REACTIONS (1)
  - ARTHROPATHY [None]
